FAERS Safety Report 9163413 (Version 1)
Quarter: 2013Q1

REPORT INFORMATION
  Report Type: Spontaneous
  Country: US (occurrence: US)
  Receive Date: 20130314
  Receipt Date: 20130314
  Transmission Date: 20140127
  Serious: Yes (Other)
  Sender: FDA-Public Use
  Company Number: US-ALLERGAN-1303445US

PATIENT
  Age: 70 Year
  Sex: Male

DRUGS (18)
  1. ALPHAGAN? P [Suspect]
     Indication: GLAUCOMA
     Dosage: 2 GTT, BID
     Route: 047
     Dates: start: 2009, end: 2012
  2. TRAVATAN Z [Concomitant]
     Indication: GLAUCOMA
     Dosage: 2 GTT, QHS
     Route: 047
  3. CYCLOSPORINE [Concomitant]
     Indication: PROPHYLAXIS AGAINST TRANSPLANT REJECTION
     Dosage: UNK
     Route: 048
     Dates: start: 2000
  4. PREDNISONE [Concomitant]
     Indication: PROPHYLAXIS AGAINST TRANSPLANT REJECTION
     Dosage: UNK
     Route: 048
  5. CELLCEPT [Concomitant]
     Indication: PROPHYLAXIS AGAINST TRANSPLANT REJECTION
     Dosage: UNK
     Route: 048
  6. TORSEMIDE [Concomitant]
     Indication: PRODUCT USED FOR UNKNOWN INDICATION
     Dosage: UNK
  7. TOPROL XL [Concomitant]
     Indication: HYPERTENSION
     Dosage: UNK
  8. FOSAMAX [Concomitant]
     Indication: OSTEOPOROSIS
     Dosage: UNK
  9. CALTRATE                           /00108001/ [Concomitant]
     Indication: NUTRITIONAL SUPPLEMENTATION
     Dosage: UNK
  10. NEFAZODONE [Concomitant]
     Indication: DEPRESSION
     Dosage: UNK
  11. HUMALOG INSULIN [Concomitant]
     Indication: DIABETES MELLITUS
     Dosage: UNK
  12. HUMULIN                            /00646001/ [Concomitant]
     Indication: DIABETES MELLITUS
     Dosage: UNK
  13. AMBIEN [Concomitant]
     Indication: INSOMNIA
     Dosage: UNK
  14. COLACE [Concomitant]
     Indication: PRODUCT USED FOR UNKNOWN INDICATION
     Dosage: UNK
  15. ALLOPURINOL [Concomitant]
     Indication: GOUT
     Dosage: UNK
  16. SYNTHROID [Concomitant]
     Indication: HYPOTHYROIDISM
     Dosage: UNK
  17. SODIUM BICARBONATE [Concomitant]
     Indication: PRODUCT USED FOR UNKNOWN INDICATION
     Dosage: UNK
  18. VITAMIN D /00107901/ [Concomitant]
     Indication: NUTRITIONAL SUPPLEMENTATION
     Dosage: UNK

REACTIONS (8)
  - Vitreous haemorrhage [Unknown]
  - Metamorphopsia [Recovering/Resolving]
  - Eye discharge [Unknown]
  - Abnormal sensation in eye [Unknown]
  - Hypersensitivity [Unknown]
  - Vision blurred [Recovering/Resolving]
  - Lacrimation increased [Unknown]
  - Lacrimation increased [Unknown]
